FAERS Safety Report 13655948 (Version 1)
Quarter: 2017Q2

REPORT INFORMATION
  Report Type: Spontaneous
  Country: FR (occurrence: FR)
  Receive Date: 20170615
  Receipt Date: 20170615
  Transmission Date: 20170830
  Serious: Yes (Hospitalization)
  Sender: FDA-Public Use
  Company Number: FR-PFIZER INC-2017254885

PATIENT
  Age: 47 Year
  Sex: Male

DRUGS (2)
  1. TAZOCILLINE [Suspect]
     Active Substance: PIPERACILLIN SODIUM\TAZOBACTAM SODIUM
     Indication: CROHN^S DISEASE
     Dosage: UNK
     Dates: start: 201704, end: 20170515
  2. TAZOCILLINE [Suspect]
     Active Substance: PIPERACILLIN SODIUM\TAZOBACTAM SODIUM
     Dosage: 1 DF, SINGLE
     Dates: start: 20170518, end: 20170518

REACTIONS (5)
  - Leukopenia [Unknown]
  - Pruritus [Recovered/Resolved]
  - Hepatocellular injury [Unknown]
  - Hyperthermia [Recovered/Resolved]
  - Dyspnoea [Recovered/Resolved]

NARRATIVE: CASE EVENT DATE: 20170508
